FAERS Safety Report 7756005-6 (Version None)
Quarter: 2011Q3

REPORT INFORMATION
  Report Type: 
  Country: None (occurrence: None)
  Receive Date: 20110916
  Receipt Date: 20110912
  Transmission Date: 20111222
  Serious: Yes (Other)
  Sender: FDA-Public Use
  Company Number: DE-PFIZER INC-2011214085

PATIENT
  Age: 52 Year
  Sex: Male

DRUGS (6)
  1. SUNITINIB MALATE [Suspect]
     Dosage: 37.5 MG, 1X/DAY
  2. SUNITINIB MALATE [Suspect]
     Dosage: 25 MG, 1X/DAY
  3. RAMIPRIL [Concomitant]
  4. BISOPROLOL [Concomitant]
  5. SUNITINIB MALATE [Suspect]
     Indication: METASTATIC RENAL CELL CARCINOMA
     Dosage: 50 MG, 1X/DAY
  6. CANDESARTAN [Concomitant]

REACTIONS (1)
  - RETINAL DETACHMENT [None]
